FAERS Safety Report 8190176-5 (Version None)
Quarter: 2012Q1

REPORT INFORMATION
  Report Type: 
  Country: None (occurrence: None)
  Receive Date: 20120307
  Receipt Date: 20120223
  Transmission Date: 20120608
  Serious: Yes (Hospitalization)
  Sender: FDA-Public Use
  Company Number: US-SANOFI-AVENTIS-2012SA014587

PATIENT
  Age: 82 Year
  Sex: Male
  Weight: 92 kg

DRUGS (13)
  1. PREDNISONE TAB [Suspect]
     Indication: PROSTATE CANCER METASTATIC
     Route: 048
     Dates: start: 20111102, end: 20120217
  2. LIDEX [Concomitant]
     Indication: DRUG THERAPY
     Route: 061
     Dates: start: 20100312
  3. PATANOL [Concomitant]
     Indication: DRUG THERAPY
     Route: 047
     Dates: start: 20061003
  4. NASONEX [Concomitant]
     Indication: DRUG THERAPY
     Route: 045
     Dates: start: 20040412
  5. MULTI-VITAMINS [Concomitant]
     Indication: PROPHYLAXIS
     Route: 048
     Dates: start: 20070614
  6. CLARITIN [Concomitant]
     Indication: DRUG THERAPY
     Route: 048
     Dates: start: 20060224
  7. POTASSIUM CHLORIDE [Concomitant]
     Indication: DRUG THERAPY
     Route: 048
     Dates: start: 20110505
  8. VESICARE [Concomitant]
     Indication: DRUG THERAPY
     Route: 048
     Dates: start: 20111115
  9. CABAZITAXEL [Suspect]
     Route: 042
     Dates: start: 20120216, end: 20120216
  10. ASPIRIN [Concomitant]
     Indication: PROPHYLAXIS
     Route: 048
     Dates: start: 20040412
  11. TAMSULOSIN HCL [Concomitant]
     Indication: DRUG THERAPY
     Route: 048
     Dates: start: 20040412
  12. CABAZITAXEL [Suspect]
     Indication: PROSTATE CANCER METASTATIC
     Route: 042
     Dates: start: 20111102, end: 20111102
  13. PROVIGIL [Concomitant]
     Indication: DRUG THERAPY
     Route: 048
     Dates: start: 20060321

REACTIONS (1)
  - HYDRONEPHROSIS [None]
